FAERS Safety Report 9849568 (Version 1)
Quarter: 2014Q1

REPORT INFORMATION
  Report Type: Spontaneous
  Country: US (occurrence: None)
  Receive Date: 20140124
  Receipt Date: 20140124
  Transmission Date: 20141002
  Serious: Yes (Life-Threatening, Hospitalization)
  Sender: FDA-Public Use
  Company Number: None

PATIENT
  Age: 59 Year
  Sex: Female
  Weight: 77.11 kg

DRUGS (9)
  1. VIIBRYD [Suspect]
     Indication: DEPRESSION
     Dosage: 1 PILL DAILY, ONCE DAILY, BY MOUTH
     Route: 048
     Dates: start: 201212, end: 201311
  2. LANTUS SOLOSTAR INJECTION [Concomitant]
  3. NOVOLOG FLEXPEN [Concomitant]
  4. CALCIUM 600 + VITAMIN D [Concomitant]
  5. BAYER LOW DOSE ^81^ [Concomitant]
  6. LYRICA [Concomitant]
  7. LISINOPRIL [Concomitant]
  8. ANASTROZOLE [Concomitant]
  9. MORPHINE SULF ER [Concomitant]

REACTIONS (4)
  - Loss of consciousness [None]
  - Fall [None]
  - Memory impairment [None]
  - Hallucinations, mixed [None]
